FAERS Safety Report 9554103 (Version 1)
Quarter: 2013Q3

REPORT INFORMATION
  Report Type: Spontaneous
  Country: US (occurrence: None)
  Receive Date: 20130815
  Receipt Date: 20130815
  Transmission Date: 20140515
  Serious: Yes (Hospitalization)
  Sender: FDA-Public Use
  Company Number: ADR-2013-00890

PATIENT
  Age: 9 Year
  Sex: Male

DRUGS (1)
  1. LIORESAL INTRATHECAL (BACLOFEN INJECTION) [Suspect]
     Dosage: INTRACTABLE SPASTICITY

REACTIONS (2)
  - Meningitis [None]
  - Implant site infection [None]
